FAERS Safety Report 10205032 (Version 1)
Quarter: 2014Q2

REPORT INFORMATION
  Report Type: Spontaneous
  Country: FR (occurrence: FR)
  Receive Date: 20140529
  Receipt Date: 20140529
  Transmission Date: 20141212
  Serious: Yes (Other)
  Sender: FDA-Public Use
  Company Number: PHHY2014FR063690

PATIENT
  Age: 31 Year
  Sex: Female

DRUGS (2)
  1. GILENYA [Suspect]
     Indication: MULTIPLE SCLEROSIS
     Dosage: 0.5 MG, QD
     Route: 048
     Dates: start: 20130621
  2. LEELOO [Suspect]
     Dosage: 1 DF, QD
     Route: 048
     Dates: start: 201309

REACTIONS (2)
  - Anogenital warts [Not Recovered/Not Resolved]
  - Papilloma viral infection [Not Recovered/Not Resolved]
